FAERS Safety Report 7638687-2 (Version None)
Quarter: 2011Q3

REPORT INFORMATION
  Report Type: 
  Country: None (occurrence: None)
  Receive Date: 20110727
  Receipt Date: 20110722
  Transmission Date: 20111222
  Serious: Yes (Hospitalization, Other)
  Sender: FDA-Public Use
  Company Number: CO-PFIZER INC-2010096847

PATIENT
  Age: 74 Year
  Sex: Male

DRUGS (11)
  1. INSULIN [Concomitant]
     Dosage: 10 IU, 1X/DAY
  2. SULBACTAM [Concomitant]
     Indication: URINARY TRACT INFECTION
     Dosage: 30 MG EVERY 6 HOURS
     Route: 042
     Dates: start: 20080519, end: 20080523
  3. NIFEDIPINE [Concomitant]
     Dosage: 30 MG, 3X/DAY
     Route: 048
     Dates: start: 20080520
  4. METFORMIN [Concomitant]
     Indication: DIABETES MELLITUS
     Dosage: 850 MG, 1X/DAY
     Route: 048
     Dates: start: 20080520
  5. ACETAMINOPHEN [Concomitant]
     Dosage: 50 MG, UNK
     Route: 048
     Dates: start: 20080519, end: 20080519
  6. CALCIUM CARBONATE [Concomitant]
  7. LYRICA [Suspect]
     Dosage: 75 MG, 2X/DAY
     Route: 048
     Dates: start: 20080520
  8. RANITIDINE [Concomitant]
     Indication: GASTRITIS
     Dosage: 50 MG EVERY 8 HOURS
     Route: 042
     Dates: start: 20080519, end: 20080520
  9. LYRICA [Suspect]
     Indication: DIABETIC NEUROPATHY
     Dosage: 75 MG, 1X/DAY
     Route: 048
     Dates: start: 20060501
  10. VITAMIN B COMPLEX CAP [Concomitant]
     Dosage: UNK
  11. FUROSEMIDE [Concomitant]
     Dosage: UNK

REACTIONS (16)
  - LUNG DISORDER [None]
  - GASTRIC ULCER [None]
  - HYPERPHOSPHATAEMIA [None]
  - PROSTATE CANCER [None]
  - RENAL FAILURE CHRONIC [None]
  - CATHETER SITE INFECTION [None]
  - ANAEMIA [None]
  - HYPOALBUMINAEMIA [None]
  - DIABETIC COMA [None]
  - PNEUMONIA [None]
  - SKIN GRAFT [None]
  - HYPOCALCAEMIA [None]
  - HAEMATURIA [None]
  - THROMBOSIS [None]
  - PELVIC PAIN [None]
  - URINARY TRACT INFECTION [None]
